FAERS Safety Report 5888314-X (Version None)
Quarter: 2008Q3

REPORT INFORMATION
  Report Type: 
  Country: None (occurrence: None)
  Receive Date: 20080918
  Receipt Date: 20080916
  Transmission Date: 20090109
  Serious: Yes (Other)
  Sender: FDA-Public Use
  Company Number: US-ASTRAZENECA-2008UW09160

PATIENT
  Age: 491 Month
  Sex: Female
  Weight: 127.9 kg

DRUGS (8)
  1. SEROQUEL [Suspect]
     Indication: DEPRESSION
     Dosage: 25MG, 100MG, 200MG, 300MG
     Route: 048
     Dates: start: 20020621, end: 20031001
  2. SEROQUEL [Suspect]
     Indication: ANXIETY
     Dosage: 25MG, 100MG, 200MG, 300MG
     Route: 048
     Dates: start: 20020621, end: 20031001
  3. SEROQUEL [Suspect]
     Dosage: 25MG, 100MG, 300MG
     Route: 048
     Dates: start: 20031006, end: 20040203
  4. SEROQUEL [Suspect]
     Dosage: 25MG, 100MG, 300MG
     Route: 048
     Dates: start: 20031006, end: 20040203
  5. SEROQUEL [Suspect]
     Dosage: 25MG, 100MG, 300MG
     Route: 048
     Dates: start: 20040302, end: 20060227
  6. SEROQUEL [Suspect]
     Dosage: 25MG, 100MG, 300MG
     Route: 048
     Dates: start: 20040302, end: 20060227
  7. KLONOPIN [Concomitant]
  8. EFFEXOR [Concomitant]

REACTIONS (3)
  - DIABETES MELLITUS [None]
  - DIABETIC NEUROPATHY [None]
  - HYSTERECTOMY [None]
